FAERS Safety Report 10236487 (Version 1)
Quarter: 2014Q2

REPORT INFORMATION
  Report Type: Report from Study
  Country: GB (occurrence: GB)
  Receive Date: 20140613
  Receipt Date: 20140613
  Transmission Date: 20141212
  Serious: Yes (Disabling)
  Sender: FDA-Public Use
  Company Number: GB-ABBVIE-14P-167-1244849-00

PATIENT
  Sex: Female

DRUGS (1)
  1. HUMIRA [Suspect]
     Indication: PRODUCT USED FOR UNKNOWN INDICATION
     Dates: start: 201312

REACTIONS (8)
  - Erythema [Unknown]
  - Facial pain [Unknown]
  - Erythema [Unknown]
  - Hyperaesthesia [Unknown]
  - Condition aggravated [Unknown]
  - Nasopharyngitis [Recovering/Resolving]
  - Influenza [Recovering/Resolving]
  - Arthralgia [Unknown]
